FAERS Safety Report 9115927 (Version 2)
Quarter: 2013Q1

REPORT INFORMATION
  Report Type: Report from Study
  Country: AU (occurrence: AU)
  Receive Date: 20130225
  Receipt Date: 20130320
  Transmission Date: 20140127
  Serious: Yes (Hospitalization)
  Sender: FDA-Public Use
  Company Number: AU-GLAXOSMITHKLINE-B0869932A

PATIENT
  Age: 71 Year
  Sex: Male
  Weight: 81 kg

DRUGS (8)
  1. PAZOPANIB [Suspect]
     Indication: METASTATIC RENAL CELL CARCINOMA
  2. OLMETEC [Concomitant]
  3. CRESTOR [Concomitant]
  4. ACIMAX [Concomitant]
  5. ONDANSETRON [Concomitant]
  6. ACTILAX [Concomitant]
     Dosage: 500MG FOUR TIMES PER DAY
  7. SENNA [Concomitant]
     Dosage: 3TAB TWICE PER DAY
  8. MICROLAX [Concomitant]

REACTIONS (1)
  - Hypercalcaemia [Recovered/Resolved]
